FAERS Safety Report 12913760 (Version 7)
Quarter: 2017Q1

REPORT INFORMATION
  Report Type: Report from Study
  Country: US (occurrence: US)
  Receive Date: 20161104
  Receipt Date: 20170330
  Transmission Date: 20170428
  Serious: Yes (Hospitalization, Other)
  Sender: FDA-Public Use
  Company Number: US-BRISTOL-MYERS SQUIBB COMPANY-BMS-2016-086794

PATIENT
  Age: 61 Year
  Sex: Male

DRUGS (1)
  1. NIVOLUMAB [Suspect]
     Active Substance: NIVOLUMAB
     Indication: NON-SMALL CELL LUNG CANCER
     Dosage: UNK, Q2WK
     Route: 042
     Dates: start: 20160930

REACTIONS (18)
  - Lacrimation increased [Unknown]
  - Musculoskeletal pain [Unknown]
  - Pain [Unknown]
  - Nausea [Unknown]
  - Dyspnoea [Unknown]
  - Somnolence [Unknown]
  - Musculoskeletal chest pain [Recovered/Resolved]
  - Cough [Unknown]
  - Musculoskeletal stiffness [Unknown]
  - Constipation [Unknown]
  - Chest pain [Recovering/Resolving]
  - Nasopharyngitis [Unknown]
  - Secretion discharge [Unknown]
  - Diarrhoea [Unknown]
  - Abdominal pain upper [Unknown]
  - Eye swelling [Unknown]
  - Flatulence [Unknown]
  - Abdominal distension [Unknown]

NARRATIVE: CASE EVENT DATE: 20161213
